FAERS Safety Report 16678468 (Version 3)
Quarter: 2019Q3

REPORT INFORMATION
  Report Type: Spontaneous
  Country: US (occurrence: US)
  Receive Date: 20190807
  Receipt Date: 20190925
  Transmission Date: 20191004
  Serious: Yes (Other)
  Sender: FDA-Public Use
  Company Number: US-PFIZER INC-2019336628

PATIENT
  Age: 79 Year
  Sex: Female

DRUGS (3)
  1. LATANOPROST. [Suspect]
     Active Substance: LATANOPROST
     Dosage: 2 GTT, 1X/DAY, [1 DROP IN EACH EYE ONCE DAILY AT BEDTIME]UNK
     Route: 047
     Dates: start: 20151022
  2. SYNTHROID [Concomitant]
     Active Substance: LEVOTHYROXINE SODIUM
     Indication: HYPOTHYROIDISM
     Dosage: UNK
  3. LATANOPROST. [Suspect]
     Active Substance: LATANOPROST
     Indication: NORMAL TENSION GLAUCOMA
     Dosage: 2 GTT, 1X/DAY, [1 DROP IN EACH EYE ONCE DAILY AT BEDTIME]
     Route: 047
     Dates: start: 20151022

REACTIONS (2)
  - Eyelid margin crusting [Unknown]
  - Drug ineffective [Unknown]
